FAERS Safety Report 7813273-X (Version None)
Quarter: 2011Q4

REPORT INFORMATION
  Report Type: 
  Country: None (occurrence: None)
  Receive Date: 20111013
  Receipt Date: 20110930
  Transmission Date: 20120403
  Serious: Yes (Other)
  Sender: FDA-Public Use
  Company Number: US-ELI_LILLY_AND_COMPANY-US201104001809

PATIENT
  Sex: Female

DRUGS (8)
  1. FORTEO [Suspect]
     Dosage: 20 UG, QD
  2. LACTULOSE [Concomitant]
     Indication: CONSTIPATION
  3. METAMUCIL-2 [Concomitant]
     Indication: CONSTIPATION
  4. ADVIL LIQUI-GELS [Concomitant]
     Indication: PAIN
  5. FORTEO [Suspect]
     Indication: OSTEOPOROSIS
     Dosage: 20 UG, QD
     Route: 065
     Dates: start: 20110201
  6. FORTEO [Suspect]
     Dosage: 20 UG, QD
  7. FORTEO [Suspect]
     Dosage: 20 UG, QD
  8. FORTEO [Suspect]
     Dosage: 20 UG, QD

REACTIONS (16)
  - URETHRAL CARBUNCLE [None]
  - SPEECH DISORDER [None]
  - FLATULENCE [None]
  - PRESYNCOPE [None]
  - ABDOMINAL DISTENSION [None]
  - HYPOACUSIS [None]
  - ASTHENIA [None]
  - ABDOMINAL PAIN [None]
  - UNDERWEIGHT [None]
  - VAGINAL HAEMORRHAGE [None]
  - GASTRIC DISORDER [None]
  - FATIGUE [None]
  - JOINT STIFFNESS [None]
  - WEIGHT DECREASED [None]
  - ARTHRALGIA [None]
  - FALL [None]
